FAERS Safety Report 9388232 (Version 2)
Quarter: 2013Q3

REPORT INFORMATION
  Report Type: Spontaneous
  Country: IN (occurrence: IN)
  Receive Date: 20130708
  Receipt Date: 20130717
  Transmission Date: 20140515
  Serious: Yes (Death)
  Sender: FDA-Public Use
  Company Number: IN-BRISTOL-MYERS SQUIBB COMPANY-19058023

PATIENT
  Age: 51 Year
  Sex: Male

DRUGS (1)
  1. BARACLUDE TABS 0.5 MG [Suspect]
     Indication: HEPATITIS B
     Route: 048
     Dates: start: 20130121, end: 20130604

REACTIONS (1)
  - Hepatitis B [Fatal]
